FAERS Safety Report 13844699 (Version 2)
Quarter: 2018Q1

REPORT INFORMATION
  Report Type: Spontaneous
  Country: AR (occurrence: AR)
  Receive Date: 20170808
  Receipt Date: 20180111
  Transmission Date: 20180508
  Serious: Yes (Other)
  Sender: FDA-Public Use
  Company Number: AR-BAYER-2017-146374

PATIENT
  Age: 66 Year
  Sex: Male

DRUGS (5)
  1. XOFIGO [Suspect]
     Active Substance: RADIUM RA-223 DICHLORIDE
     Indication: METASTASES TO BONE
  2. ENZALUTAMIDE [Concomitant]
     Active Substance: ENZALUTAMIDE
     Dosage: 160 MG, QD
  3. CABAZITAXEL [Concomitant]
     Active Substance: CABAZITAXEL
     Dosage: UNK
  4. DES [Concomitant]
     Active Substance: DIETHYLSTILBESTROL
     Dosage: 3 MG, QD
  5. XOFIGO [Suspect]
     Active Substance: RADIUM RA-223 DICHLORIDE
     Indication: PROSTATE CANCER STAGE IV
     Dosage: 1 DF, Q4WK
     Dates: start: 201502, end: 201508

REACTIONS (6)
  - Leukopenia [Unknown]
  - Bone marrow infiltration [Unknown]
  - Anaemia of chronic disease [Unknown]
  - Decreased appetite [Not Recovered/Not Resolved]
  - Bone marrow failure [Unknown]
  - Weight decreased [Not Recovered/Not Resolved]

NARRATIVE: CASE EVENT DATE: 201508
